FAERS Safety Report 16039157 (Version 1)
Quarter: 2019Q1

REPORT INFORMATION
  Report Type: Spontaneous
  Country: US (occurrence: US)
  Receive Date: 20190306
  Receipt Date: 20190306
  Transmission Date: 20190418
  Serious: No
  Sender: FDA-Public Use
  Company Number: US-PFIZER INC-2019089948

PATIENT
  Age: 74 Year
  Sex: Female
  Weight: 48.6 kg

DRUGS (1)
  1. IBRANCE [Suspect]
     Active Substance: PALBOCICLIB
     Indication: PELVIC NEOPLASM
     Dosage: 125 MG, CYCLIC, (21 DAYS AND STOP FOR 7 DAYS)
     Route: 048
     Dates: start: 201812

REACTIONS (3)
  - Product use in unapproved indication [Unknown]
  - Vertigo [Unknown]
  - Confusional state [Unknown]
